FAERS Safety Report 6201055-4 (Version None)
Quarter: 2009Q2

REPORT INFORMATION
  Report Type: 
  Country: None (occurrence: None)
  Receive Date: 20090526
  Receipt Date: 20090422
  Transmission Date: 20091009
  Serious: No
  Sender: FDA-Public Use
  Company Number: US-BAYER-200918990NA

PATIENT
  Age: 47 Year
  Sex: Female

DRUGS (2)
  1. AVELOX [Suspect]
     Indication: DRUG USE FOR UNKNOWN INDICATION
  2. TORADOL [Concomitant]

REACTIONS (2)
  - DYSPNOEA [None]
  - PRURITUS [None]
